FAERS Safety Report 11112713 (Version 2)
Quarter: 2015Q3

REPORT INFORMATION
  Report Type: Report from Study
  Country: US (occurrence: US)
  Receive Date: 20150514
  Receipt Date: 20150818
  Transmission Date: 20151125
  Serious: Yes (Other)
  Sender: FDA-Public Use
  Company Number: US-SA-2014SA062040

PATIENT
  Age: 57 Year
  Sex: Female

DRUGS (3)
  1. AUBAGIO [Suspect]
     Active Substance: TERIFLUNOMIDE
     Indication: RELAPSING-REMITTING MULTIPLE SCLEROSIS
     Route: 048
     Dates: start: 20140201, end: 20140506
  2. AUBAGIO [Suspect]
     Active Substance: TERIFLUNOMIDE
     Indication: RELAPSING-REMITTING MULTIPLE SCLEROSIS
     Route: 048
  3. AUBAGIO [Suspect]
     Active Substance: TERIFLUNOMIDE
     Indication: RELAPSING-REMITTING MULTIPLE SCLEROSIS
     Route: 048

REACTIONS (16)
  - Tendon disorder [Unknown]
  - Muscle disorder [Unknown]
  - Multiple sclerosis relapse [Recovering/Resolving]
  - Fatigue [Unknown]
  - Contusion [Unknown]
  - Gait disturbance [Unknown]
  - Fall [Not Recovered/Not Resolved]
  - Memory impairment [Unknown]
  - Dyskinesia [Unknown]
  - Impaired work ability [Unknown]
  - Peripheral coldness [Unknown]
  - Visual impairment [Unknown]
  - Neuropathy peripheral [Unknown]
  - Muscular weakness [Not Recovered/Not Resolved]
  - Muscle tightness [Not Recovered/Not Resolved]
  - Balance disorder [Unknown]

NARRATIVE: CASE EVENT DATE: 201406
